FAERS Safety Report 18150005 (Version 8)
Quarter: 2021Q4

REPORT INFORMATION
  Report Type: Report from Study
  Country: US (occurrence: US)
  Receive Date: 20200814
  Receipt Date: 20211123
  Transmission Date: 20220304
  Serious: Yes (Other)
  Sender: FDA-Public Use
  Company Number: US-BIOVITRUM-2020US4262

PATIENT
  Age: 12 Year
  Sex: Female

DRUGS (2)
  1. KINERET [Suspect]
     Active Substance: ANAKINRA
     Indication: Still^s disease
     Route: 058
     Dates: start: 201910
  2. KINERET [Suspect]
     Active Substance: ANAKINRA
     Indication: Juvenile idiopathic arthritis

REACTIONS (11)
  - Juvenile idiopathic arthritis [Unknown]
  - Condition aggravated [Unknown]
  - Tonsillar disorder [Unknown]
  - Infection [Unknown]
  - Ingrowing nail [Recovered/Resolved]
  - Abscess [Recovered/Resolved]
  - Illness [Recovering/Resolving]
  - Pyrexia [Recovering/Resolving]
  - COVID-19 [Unknown]
  - Product dose omission issue [Unknown]
  - Off label use [Not Recovered/Not Resolved]

NARRATIVE: CASE EVENT DATE: 20191011
